FAERS Safety Report 8108774-3 (Version None)
Quarter: 2012Q1

REPORT INFORMATION
  Report Type: 
  Country: None (occurrence: None)
  Receive Date: 20120202
  Receipt Date: 20120124
  Transmission Date: 20120608
  Serious: Yes (Other)
  Sender: FDA-Public Use
  Company Number: PHHY2012US008376

PATIENT

DRUGS (2)
  1. CUBICIN [Suspect]
     Dosage: UNK
  2. RIFAMPIN [Suspect]
     Dosage: UNK

REACTIONS (1)
  - LUNG INFILTRATION [None]
